FAERS Safety Report 13372371 (Version 1)
Quarter: 2017Q1

REPORT INFORMATION
  Report Type: Spontaneous
  Country: US (occurrence: US)
  Receive Date: 20170324
  Receipt Date: 20170324
  Transmission Date: 20170429
  Serious: Yes (Other)
  Sender: FDA-Public Use
  Company Number: None

PATIENT
  Age: 48 Year
  Sex: Female
  Weight: 58.97 kg

DRUGS (1)
  1. CEFAZOLIN 10 GM SAGENT [Suspect]
     Active Substance: CEFAZOLIN
     Indication: WOUND INFECTION
     Dosage: FREQUENCY - Q 24H
     Route: 042
     Dates: start: 20170307, end: 20170320

REACTIONS (3)
  - Urticaria [None]
  - Rash [None]
  - Injection site erythema [None]

NARRATIVE: CASE EVENT DATE: 20170319
